FAERS Safety Report 24146755 (Version 1)
Quarter: 2024Q3

REPORT INFORMATION
  Report Type: Spontaneous
  Country: US (occurrence: US)
  Receive Date: 20240729
  Receipt Date: 20240729
  Transmission Date: 20241017
  Serious: Yes (Life-Threatening)
  Sender: CHEPLAPHARM
  Company Number: US-CHEPLA-2024009363

PATIENT
  Sex: Female

DRUGS (3)
  1. HYDROXYUREA [Suspect]
     Active Substance: HYDROXYUREA
     Indication: Product used for unknown indication
  2. AYVAKIT [Suspect]
     Active Substance: AVAPRITINIB
     Indication: Systemic mastocytosis
     Dosage: DAILY DOSE: 100 MILLIGRAM
     Dates: start: 20230913
  3. AYVAKIT [Suspect]
     Active Substance: AVAPRITINIB
     Indication: Systemic mastocytosis
     Dosage: DAILY DOSE: 100 MILLIGRAM
     Dates: start: 20230913

REACTIONS (5)
  - Platelet disorder [Unknown]
  - Guttate psoriasis [Unknown]
  - Eczema [Unknown]
  - Feeling abnormal [Unknown]
  - Skin disorder [Unknown]
